FAERS Safety Report 8955867 (Version 2)
Quarter: 2013Q2

REPORT INFORMATION
  Report Type: Spontaneous
  Country: US (occurrence: US)
  Receive Date: 20121210
  Receipt Date: 20130626
  Transmission Date: 20140414
  Serious: No
  Sender: FDA-Public Use
  Company Number: US-009507513-1212USA002816

PATIENT
  Age: 23 Year
  Sex: Female

DRUGS (1)
  1. IMPLANON [Suspect]
     Indication: CONTRACEPTION
     Dosage: UNK
     Route: 059
     Dates: start: 20110325

REACTIONS (7)
  - Impaired healing [Unknown]
  - Medical device complication [Unknown]
  - Device difficult to use [Unknown]
  - Device deployment issue [Unknown]
  - Device difficult to use [Unknown]
  - Depression [Unknown]
  - Weight increased [Unknown]
